FAERS Safety Report 5955578-3 (Version None)
Quarter: 2008Q4

REPORT INFORMATION
  Report Type: 
  Country: None (occurrence: None)
  Receive Date: 20081117
  Receipt Date: 20081106
  Transmission Date: 20090506
  Serious: Yes (Hospitalization)
  Sender: FDA-Public Use
  Company Number: JP-JNJFOC-20081007471

PATIENT
  Sex: Female

DRUGS (3)
  1. TOPINA [Suspect]
     Indication: EPILEPSY
     Route: 048
  2. PHENYTOIN [Interacting]
     Indication: EPILEPSY
     Route: 001
  3. PHENOBARBITAL TAB [Interacting]
     Indication: EPILEPSY

REACTIONS (3)
  - CONVULSION [None]
  - DRUG INTERACTION [None]
  - DRUG TOXICITY [None]
